FAERS Safety Report 4373083-5 (Version None)
Quarter: 2004Q2

REPORT INFORMATION
  Report Type: 
  Country: None (occurrence: None)
  Receive Date: 20040526
  Receipt Date: 20040513
  Transmission Date: 20050107
  Serious: Yes (Hospitalization)
  Sender: FDA-Public Use
  Company Number: 2004022322

PATIENT
  Age: 46 Year
  Sex: Male

DRUGS (1)
  1. GEODON [Suspect]
     Indication: BIPOLAR DISORDER
     Dosage: ( 1 IN 1 D), ORAL
     Route: 048
     Dates: end: 20040318

REACTIONS (3)
  - AGGRESSION [None]
  - ANXIETY [None]
  - LOGORRHOEA [None]
